FAERS Safety Report 10488403 (Version 1)
Quarter: 2014Q3

REPORT INFORMATION
  Report Type: Spontaneous
  Country: US (occurrence: None)
  Receive Date: 20140815
  Receipt Date: 20140815
  Transmission Date: 20150326
  Serious: Yes (Other)
  Sender: FDA-Public Use
  Company Number: ADR-2013-01559

PATIENT
  Age: 72 Year
  Sex: Female

DRUGS (1)
  1. BACLOFEN 500MCG/ML [Suspect]
     Active Substance: BACLOFEN

REACTIONS (6)
  - Asthenia [None]
  - No therapeutic response [None]
  - Cold sweat [None]
  - Muscle spasticity [None]
  - Fatigue [None]
  - Drug withdrawal syndrome [None]
